FAERS Safety Report 8605557-2 (Version None)
Quarter: 2012Q3

REPORT INFORMATION
  Report Type: 
  Country: None (occurrence: None)
  Receive Date: 20120820
  Receipt Date: 20120814
  Transmission Date: 20120928
  Serious: Yes (Other)
  Sender: FDA-Public Use
  Company Number: US-ASTRAZENECA-2012SE57242

PATIENT
  Age: 62 Year
  Sex: Female
  Weight: 57.2 kg

DRUGS (3)
  1. METOPROLOL TARTRATE [Concomitant]
     Indication: HYPERTENSION
  2. NEXIUM [Suspect]
     Indication: GASTROOESOPHAGEAL REFLUX DISEASE
     Route: 048
     Dates: start: 19980101
  3. NEXIUM [Suspect]
     Indication: OESOPHAGEAL IRRITATION
     Route: 048
     Dates: start: 19980101

REACTIONS (3)
  - GASTRIC POLYPS [None]
  - GAIT DISTURBANCE [None]
  - ARTHRITIS [None]
